FAERS Safety Report 4452813-8 (Version None)
Quarter: 2004Q3

REPORT INFORMATION
  Report Type: 
  Country: None (occurrence: None)
  Receive Date: 20040916
  Receipt Date: 20040906
  Transmission Date: 20050211
  Serious: Yes (Hospitalization)
  Sender: FDA-Public Use
  Company Number: 24996

PATIENT
  Age: 28 Year
  Sex: Female

DRUGS (1)
  1. FLECAINIDE ACETATE (0RAL) (FLECAINIDE ACETATE) (FLECAINIDE ACETATE) [Suspect]

REACTIONS (7)
  - BLOOD PRESSURE DECREASED [None]
  - BLOOD SODIUM INCREASED [None]
  - BLOOD UREA DECREASED [None]
  - BRADYCARDIA [None]
  - COMA [None]
  - ELECTROCARDIOGRAM QRS COMPLEX PROLONGED [None]
  - OVERDOSE [None]
